FAERS Safety Report 9421011 (Version 2)
Quarter: 2014Q1

REPORT INFORMATION
  Report Type: Spontaneous
  Country: US (occurrence: US)
  Receive Date: 20130725
  Receipt Date: 20140206
  Transmission Date: 20141002
  Serious: Yes (Hospitalization)
  Sender: FDA-Public Use
  Company Number: US-B.I. PHARMACEUTICALS,INC./RIDGEFIELD-2013-BI-16292BP

PATIENT
  Age: 69 Year
  Sex: Male
  Weight: 156.94 kg

DRUGS (23)
  1. PRADAXA [Suspect]
     Indication: ANTICOAGULANT THERAPY
     Route: 048
     Dates: start: 20110610, end: 20110630
  2. PRADAXA [Suspect]
     Indication: ATRIAL FIBRILLATION
  3. WELLBUTRIN [Concomitant]
     Dosage: 300 MG
     Route: 048
  4. CHRONDROITIN GLUCOASMINE [Concomitant]
     Route: 048
  5. HUMULIN [Concomitant]
     Dosage: 26 U
     Route: 058
  6. SALICYLATE [Concomitant]
     Route: 048
  7. LEVOTHYROXINE [Concomitant]
     Dosage: 25 MG
     Route: 048
  8. CALCIUM CARBONATE [Concomitant]
     Dosage: 500 MG
     Route: 048
  9. MULTIVITAMIN [Concomitant]
     Route: 048
  10. TOPAMAX [Concomitant]
     Dosage: 100 MG
     Route: 048
  11. TOPROL XL [Concomitant]
     Dosage: 50 MG
     Route: 048
  12. MUCINEX [Concomitant]
     Dosage: 1200 MG
     Route: 048
  13. PRISTIQ [Concomitant]
     Dosage: 50 MG
     Route: 048
  14. LASIX [Concomitant]
     Dosage: 40 MG
     Route: 048
  15. PRILOSEC [Concomitant]
     Dosage: 20 MG
     Route: 048
  16. PROVIGIL [Concomitant]
     Dosage: 150 MG
     Route: 048
  17. ASPIRIN [Concomitant]
     Dosage: 81 MG
     Route: 048
  18. IMDUR [Concomitant]
  19. FLOMAX [Concomitant]
     Dosage: 0.4 MG
     Route: 048
  20. LANTUS [Concomitant]
     Dosage: 56 U
     Route: 058
  21. CARDIZEM [Concomitant]
     Dosage: 240 MG
     Route: 048
  22. ADVAIR DISKUS [Concomitant]
     Dosage: 2 PUF
  23. ALLOPURINOL [Concomitant]
     Dosage: 300 MG
     Route: 048

REACTIONS (3)
  - Renal haematoma [Recovered/Resolved]
  - Anaemia [Unknown]
  - Renal failure acute [Recovered/Resolved]
